FAERS Safety Report 15552797 (Version 2)
Quarter: 2018Q4

REPORT INFORMATION
  Report Type: Spontaneous
  Country: LB (occurrence: US)
  Receive Date: 20181025
  Receipt Date: 20181207
  Transmission Date: 20190205
  Serious: Yes (Hospitalization, Other)
  Sender: FDA-Public Use
  Company Number: LB-009507513-1810USA007716

PATIENT
  Age: 78 Year
  Sex: Male

DRUGS (5)
  1. OMEGA-3 ACIDS [Interacting]
     Active Substance: OMEGA-3 FATTY ACIDS
  2. AMIODARONE [Interacting]
     Active Substance: AMIODARONE
     Indication: PROPHYLAXIS
  3. ZOCOR [Suspect]
     Active Substance: SIMVASTATIN
     Route: 048
  4. ASPIRIN. [Interacting]
     Active Substance: ASPIRIN
  5. DABIGATRAN [Interacting]
     Active Substance: DABIGATRAN
     Indication: ATRIAL FIBRILLATION
     Dosage: 300 MG (150 MG X 2), DAILY

REACTIONS (3)
  - Gastrointestinal haemorrhage [Unknown]
  - Drug interaction [Unknown]
  - Coagulopathy [Unknown]
